FAERS Safety Report 8430987-1 (Version None)
Quarter: 2012Q2

REPORT INFORMATION
  Report Type: 
  Country: None (occurrence: None)
  Receive Date: 20120612
  Receipt Date: 20120606
  Transmission Date: 20120825
  Serious: Yes (Death)
  Sender: FDA-Public Use
  Company Number: PH-PFIZER INC-2012136578

PATIENT

DRUGS (2)
  1. MEROPENEM [Concomitant]
     Dosage: UNK
  2. ZYVOX [Suspect]
     Dosage: UNK
     Route: 048

REACTIONS (1)
  - PANCREATITIS [None]
